FAERS Safety Report 7291957-2 (Version None)
Quarter: 2011Q1

REPORT INFORMATION
  Report Type: 
  Country: None (occurrence: None)
  Receive Date: 20110214
  Receipt Date: 20110201
  Transmission Date: 20110831
  Serious: Yes (Other)
  Sender: FDA-Public Use
  Company Number: US-GENENTECH-313523

PATIENT
  Age: 48 Year
  Sex: Male
  Weight: 77.098 kg

DRUGS (3)
  1. RITUXAN [Suspect]
     Indication: LYMPHOMA
  2. ZEVALIN [Suspect]
     Indication: LYMPHOMA
     Dosage: UNK
     Route: 042
     Dates: start: 20060123, end: 20060123
  3. ZEVALIN [Suspect]
     Indication: LYMPHOMA
     Dosage: 1 ML, SINGLE
     Route: 042
     Dates: start: 20060201, end: 20060201

REACTIONS (10)
  - DYSPNOEA [None]
  - GAIT DISTURBANCE [None]
  - CHEST DISCOMFORT [None]
  - TREMOR [None]
  - HYPOTONIA [None]
  - BACK PAIN [None]
  - BRADYCARDIA [None]
  - URINARY INCONTINENCE [None]
  - HYPOVENTILATION [None]
  - DRY THROAT [None]
